FAERS Safety Report 9726586 (Version 1)
Quarter: 2013Q4

REPORT INFORMATION
  Report Type: Report from Study
  Country: DE (occurrence: DE)
  Receive Date: 20131203
  Receipt Date: 20131203
  Transmission Date: 20140711
  Serious: Yes (Hospitalization)
  Sender: FDA-Public Use
  Company Number: DE-GLAXOSMITHKLINE-B0947352A

PATIENT
  Age: 63 Year
  Sex: Female

DRUGS (2)
  1. TOPOTECAN [Suspect]
     Indication: OVARIAN CANCER
     Dosage: 2.2MG CYCLIC
     Route: 042
     Dates: start: 20110411
  2. BEVACIZUMAB [Suspect]
     Indication: OVARIAN CANCER
     Dosage: 15MGK CYCLIC
     Route: 042
     Dates: start: 20120215, end: 20131112

REACTIONS (1)
  - Myocardial infarction [Unknown]
